FAERS Safety Report 6719706-4 (Version None)
Quarter: 2010Q2

REPORT INFORMATION
  Report Type: 
  Country: None (occurrence: None)
  Receive Date: 20100511
  Receipt Date: 20100423
  Transmission Date: 20101027
  Serious: Yes (Disabling)
  Sender: FDA-Public Use
  Company Number: PHHY2010FR26211

PATIENT
  Sex: Female

DRUGS (3)
  1. FEMARA [Suspect]
     Dosage: 2.5 MG, UNK
     Dates: start: 20100223, end: 20100324
  2. LOSARTAN POTASSIUM [Concomitant]
     Indication: HYPERTENSION
  3. SPIRONOLACTONE [Concomitant]
     Indication: HYPERTENSION

REACTIONS (5)
  - BLINDNESS [None]
  - DEPRESSION [None]
  - RETINAL ARTERY OCCLUSION [None]
  - RETINAL OEDEMA [None]
  - VISUAL ACUITY REDUCED [None]
